FAERS Safety Report 21559699 (Version 4)
Quarter: 2022Q4

REPORT INFORMATION
  Report Type: Spontaneous
  Country: US (occurrence: US)
  Receive Date: 20221107
  Receipt Date: 20221207
  Transmission Date: 20230112
  Serious: No
  Sender: FDA-Public Use
  Company Number: US-002147023-NVSC2022US249940

PATIENT
  Sex: Female

DRUGS (1)
  1. XIIDRA [Suspect]
     Active Substance: LIFITEGRAST
     Indication: Product used for unknown indication
     Dosage: UNK, BID
     Route: 047
     Dates: start: 20221103, end: 20221103

REACTIONS (5)
  - Drug hypersensitivity [Unknown]
  - Swelling [Unknown]
  - Musculoskeletal stiffness [Unknown]
  - Swelling face [Unknown]
  - Eye irritation [Unknown]
